FAERS Safety Report 8469659-6 (Version None)
Quarter: 2012Q2

REPORT INFORMATION
  Report Type: 
  Country: None (occurrence: None)
  Receive Date: 20120626
  Receipt Date: 20120611
  Transmission Date: 20120825
  Serious: Yes (Life-Threatening, Hospitalization, Congenital Anomaly, Other)
  Sender: FDA-Public Use
  Company Number: US-ELI_LILLY_AND_COMPANY-US201205005770

PATIENT

DRUGS (4)
  1. PRENATAL VITAMINS                  /01549301/ [Concomitant]
     Dosage: 2 DF, QD
     Route: 064
     Dates: end: 20120406
  2. MAGNESIUM SULFATE [Concomitant]
     Dosage: 300 MG, QD
     Route: 064
     Dates: end: 20120406
  3. FISH OIL [Concomitant]
     Dosage: 1 DF, QD
     Route: 064
     Dates: end: 20120406
  4. DULOXETINE HYDROCHLORIDE [Suspect]
     Indication: DEPRESSION
     Dosage: 60 MG, QD
     Route: 064
     Dates: end: 20120406

REACTIONS (5)
  - PATENT DUCTUS ARTERIOSUS [None]
  - PREMATURE BABY [None]
  - FOETAL EXPOSURE DURING PREGNANCY [None]
  - PULMONARY HYPERTENSION [None]
  - TRICUSPID VALVE INCOMPETENCE [None]
